FAERS Safety Report 9880549 (Version 1)
Quarter: 2014Q1

REPORT INFORMATION
  Report Type: Report from Study
  Country: UY (occurrence: UY)
  Receive Date: 20140207
  Receipt Date: 20140207
  Transmission Date: 20141002
  Serious: Yes (Hospitalization, Other)
  Sender: FDA-Public Use
  Company Number: UY-ROCHE-1344126

PATIENT
  Sex: Male

DRUGS (1)
  1. XELODA [Suspect]
     Indication: COLON CANCER METASTATIC
     Route: 048

REACTIONS (3)
  - Pulmonary oedema [Recovered/Resolved]
  - Hydronephrosis [Recovered/Resolved]
  - Weight decreased [Unknown]
